FAERS Safety Report 6492304-6 (Version None)
Quarter: 2009Q4

REPORT INFORMATION
  Report Type: 
  Country: None (occurrence: None)
  Receive Date: 20091214
  Receipt Date: 20091111
  Transmission Date: 20100525
  Serious: No
  Sender: FDA-Public Use
  Company Number: US-BAYER-200939382NA

PATIENT
  Age: 53 Year
  Sex: Male

DRUGS (1)
  1. LEVITRA [Suspect]
     Indication: POSTOPERATIVE CARE
     Dosage: TOTAL DAILY DOSE: 5 MG  UNIT DOSE: 20 MG
     Dates: start: 20091001

REACTIONS (1)
  - ABNORMAL DREAMS [None]
